FAERS Safety Report 23433478 (Version 1)
Quarter: 2024Q1

REPORT INFORMATION
  Report Type: Spontaneous
  Country: US (occurrence: US)
  Receive Date: 20240123
  Receipt Date: 20240123
  Transmission Date: 20240410
  Serious: Yes (Hospitalization, Other)
  Sender: FDA-Public Use
  Company Number: US-FreseniusKabi-FK202400995

PATIENT
  Age: 66 Year
  Sex: Male
  Weight: 69 kg

DRUGS (117)
  1. LEUCOVORIN CALCIUM [Suspect]
     Active Substance: LEUCOVORIN CALCIUM
     Indication: Colorectal cancer
     Dosage: ROUTE: IV DRIP
     Route: 041
     Dates: start: 20221129, end: 20221129
  2. LEUCOVORIN CALCIUM [Suspect]
     Active Substance: LEUCOVORIN CALCIUM
     Dosage: ROUTE: IV DRIP
     Route: 041
     Dates: start: 20221228, end: 20221228
  3. LEUCOVORIN CALCIUM [Suspect]
     Active Substance: LEUCOVORIN CALCIUM
     Dosage: ROUTE: IV DRIP
     Route: 041
     Dates: start: 20230110, end: 20230110
  4. LEUCOVORIN CALCIUM [Suspect]
     Active Substance: LEUCOVORIN CALCIUM
     Dosage: ROUTE: IV DRIP
     Route: 041
     Dates: start: 20230221, end: 20230221
  5. LEUCOVORIN CALCIUM [Suspect]
     Active Substance: LEUCOVORIN CALCIUM
     Dosage: ROUTE: IV DRIP?LAST DOSE
     Route: 041
     Dates: start: 20230404, end: 20230404
  6. LEUCOVORIN CALCIUM [Suspect]
     Active Substance: LEUCOVORIN CALCIUM
     Dosage: ROUTE: IV DRIP
     Route: 041
     Dates: start: 20221213, end: 20221213
  7. LEUCOVORIN CALCIUM [Suspect]
     Active Substance: LEUCOVORIN CALCIUM
     Dosage: ROUTE: IV DRIP
     Route: 041
     Dates: start: 20230207, end: 20230207
  8. ZIMBERELIMAB [Suspect]
     Active Substance: ZIMBERELIMAB
     Indication: Colorectal cancer
     Dosage: ROUTE: IV DRIP
     Route: 041
     Dates: start: 20221129, end: 20221129
  9. ZIMBERELIMAB [Suspect]
     Active Substance: ZIMBERELIMAB
     Dosage: ROUTE: IV DRIP
     Route: 041
     Dates: start: 20230307, end: 20230307
  10. ZIMBERELIMAB [Suspect]
     Active Substance: ZIMBERELIMAB
     Dosage: ROUTE: IV DRIP
     Route: 041
     Dates: start: 20230404, end: 20230404
  11. ZIMBERELIMAB [Suspect]
     Active Substance: ZIMBERELIMAB
     Dosage: ROUTE: IV DRIP
     Route: 041
     Dates: start: 20230509, end: 20230509
  12. ZIMBERELIMAB [Suspect]
     Active Substance: ZIMBERELIMAB
     Dosage: ROUTE: IV DRIP
     Route: 041
     Dates: start: 20230627, end: 20230627
  13. ZIMBERELIMAB [Suspect]
     Active Substance: ZIMBERELIMAB
     Dosage: ROUTE: IV DRIP
     Route: 041
     Dates: start: 20230725, end: 20230725
  14. ZIMBERELIMAB [Suspect]
     Active Substance: ZIMBERELIMAB
     Dosage: ROUTE: IV DRIP
     Route: 041
     Dates: start: 20230822, end: 20230822
  15. ZIMBERELIMAB [Suspect]
     Active Substance: ZIMBERELIMAB
     Dosage: ROUTE: IV DRIP
     Route: 041
     Dates: start: 20230919, end: 20230919
  16. ZIMBERELIMAB [Suspect]
     Active Substance: ZIMBERELIMAB
     Dosage: ROUTE: IV DRIP ?LAST DOSE
     Route: 041
     Dates: start: 20231122, end: 20231122
  17. ZIMBERELIMAB [Suspect]
     Active Substance: ZIMBERELIMAB
     Dosage: ROUTE: IV DRIP
     Dates: start: 20221228, end: 20221228
  18. ZIMBERELIMAB [Suspect]
     Active Substance: ZIMBERELIMAB
     Dosage: ROUTE: IV DRIP
     Route: 041
     Dates: start: 20230207, end: 20230207
  19. ETRUMADENANT [Suspect]
     Active Substance: ETRUMADENANT
     Indication: Colorectal cancer
     Dosage: FORM: CAPSULE?ROUTE: ORAL
     Route: 048
     Dates: start: 20221212, end: 20221227
  20. ETRUMADENANT [Suspect]
     Active Substance: ETRUMADENANT
     Dosage: FORM: CAPSULE?ROUTE: ORAL
     Route: 048
     Dates: start: 20221213, end: 20221213
  21. ETRUMADENANT [Suspect]
     Active Substance: ETRUMADENANT
     Dosage: FORM: CAPSULE?ROUTE: ORAL
     Route: 048
     Dates: start: 20221214, end: 20221214
  22. ETRUMADENANT [Suspect]
     Active Substance: ETRUMADENANT
     Dosage: FORM: CAPSULE?ROUTE: ORAL
     Route: 048
     Dates: start: 20221227, end: 20221227
  23. ETRUMADENANT [Suspect]
     Active Substance: ETRUMADENANT
     Dosage: FORM: CAPSULE?ROUTE: ORAL
     Route: 048
     Dates: start: 20221228, end: 20221228
  24. ETRUMADENANT [Suspect]
     Active Substance: ETRUMADENANT
     Dosage: FORM: CAPSULE?ROUTE: ORAL
     Route: 048
     Dates: start: 20221229, end: 20230123
  25. ETRUMADENANT [Suspect]
     Active Substance: ETRUMADENANT
     Dosage: FORM: CAPSULE?ROUTE: ORAL
     Route: 048
     Dates: start: 20221230, end: 20230123
  26. ETRUMADENANT [Suspect]
     Active Substance: ETRUMADENANT
     Dosage: FORM: CAPSULE?ROUTE: ORAL
     Route: 048
     Dates: start: 20230101, end: 20230123
  27. ETRUMADENANT [Suspect]
     Active Substance: ETRUMADENANT
     Dosage: FORM: CAPSULE?ROUTE: ORAL
     Route: 048
     Dates: start: 20230106, end: 20230123
  28. ETRUMADENANT [Suspect]
     Active Substance: ETRUMADENANT
     Dosage: FORM: CAPSULE?ROUTE: ORAL
     Route: 048
     Dates: start: 20230108, end: 20230123
  29. ETRUMADENANT [Suspect]
     Active Substance: ETRUMADENANT
     Dosage: FORM: CAPSULE?ROUTE: ORAL
     Route: 048
     Dates: start: 20230109, end: 20230123
  30. ETRUMADENANT [Suspect]
     Active Substance: ETRUMADENANT
     Dosage: FORM: CAPSULE?ROUTE: ORAL
     Route: 048
     Dates: start: 20230110, end: 20230123
  31. ETRUMADENANT [Suspect]
     Active Substance: ETRUMADENANT
     Dosage: FORM: CAPSULE?ROUTE: ORAL
     Route: 048
     Dates: start: 20230111, end: 20230123
  32. ETRUMADENANT [Suspect]
     Active Substance: ETRUMADENANT
     Dosage: FORM: CAPSULE?ROUTE: ORAL
     Route: 048
     Dates: start: 20230112, end: 20230123
  33. ETRUMADENANT [Suspect]
     Active Substance: ETRUMADENANT
     Dosage: FORM: CAPSULE?ROUTE: ORAL
     Route: 048
     Dates: start: 20230116, end: 20230123
  34. ETRUMADENANT [Suspect]
     Active Substance: ETRUMADENANT
     Dosage: FORM: CAPSULE?ROUTE: ORAL
     Route: 048
     Dates: start: 20230123, end: 20230123
  35. ETRUMADENANT [Suspect]
     Active Substance: ETRUMADENANT
     Dosage: FORM: CAPSULE?ROUTE: ORAL
     Route: 048
     Dates: start: 20230123, end: 20230123
  36. ETRUMADENANT [Suspect]
     Active Substance: ETRUMADENANT
     Dosage: FORM: CAPSULE?ROUTE: ORAL
     Route: 048
     Dates: start: 20230207, end: 20230207
  37. ETRUMADENANT [Suspect]
     Active Substance: ETRUMADENANT
     Dosage: FORM: CAPSULE?ROUTE: ORAL
     Route: 048
     Dates: start: 20230208, end: 20230306
  38. ETRUMADENANT [Suspect]
     Active Substance: ETRUMADENANT
     Dosage: FORM: CAPSULE?ROUTE: ORAL
     Route: 048
     Dates: start: 20230213, end: 20230306
  39. ETRUMADENANT [Suspect]
     Active Substance: ETRUMADENANT
     Dosage: FORM: CAPSULE?ROUTE: ORAL
     Route: 048
     Dates: start: 20230215, end: 20230306
  40. ETRUMADENANT [Suspect]
     Active Substance: ETRUMADENANT
     Dosage: FORM: CAPSULE?ROUTE: ORAL
     Route: 048
     Dates: start: 20230216, end: 20230306
  41. ETRUMADENANT [Suspect]
     Active Substance: ETRUMADENANT
     Dosage: FORM: CAPSULE?ROUTE: ORAL
     Route: 048
     Dates: start: 20230218, end: 20230306
  42. ETRUMADENANT [Suspect]
     Active Substance: ETRUMADENANT
     Dosage: FORM: CAPSULE?ROUTE: ORAL
     Route: 048
     Dates: start: 20230220, end: 20230306
  43. ETRUMADENANT [Suspect]
     Active Substance: ETRUMADENANT
     Dosage: FORM: CAPSULE?ROUTE: ORAL
     Route: 048
     Dates: start: 20230221, end: 20230306
  44. ETRUMADENANT [Suspect]
     Active Substance: ETRUMADENANT
     Dosage: FORM: CAPSULE?ROUTE: ORAL
     Route: 048
     Dates: start: 20230307, end: 20230319
  45. ETRUMADENANT [Suspect]
     Active Substance: ETRUMADENANT
     Dosage: FORM: CAPSULE?ROUTE: ORAL
     Route: 048
     Dates: start: 20230307, end: 20230319
  46. ETRUMADENANT [Suspect]
     Active Substance: ETRUMADENANT
     Dosage: FORM: CAPSULE?ROUTE: ORAL?DURATION: 1 MONTH 4 DAYS
     Route: 048
     Dates: start: 20230404, end: 20230507
  47. ETRUMADENANT [Suspect]
     Active Substance: ETRUMADENANT
     Dosage: FORM: CAPSULE?ROUTE: ORAL
     Route: 048
     Dates: start: 20230509, end: 20230605
  48. ETRUMADENANT [Suspect]
     Active Substance: ETRUMADENANT
     Dosage: FORM: CAPSULE?ROUTE: ORAL?DURATION: 1 MONTH 18 DAYS
     Route: 048
     Dates: start: 20230605, end: 20230722
  49. ETRUMADENANT [Suspect]
     Active Substance: ETRUMADENANT
     Dosage: FORM: CAPSULE?ROUTE: ORAL
     Route: 048
     Dates: start: 20230726, end: 20230820
  50. ETRUMADENANT [Suspect]
     Active Substance: ETRUMADENANT
     Dosage: FORM: CAPSULE?ROUTE: ORAL
     Route: 048
     Dates: start: 20230822, end: 20230917
  51. ETRUMADENANT [Suspect]
     Active Substance: ETRUMADENANT
     Dosage: FORM: CAPSULE?ROUTE: ORAL
     Route: 048
     Dates: start: 20230920, end: 20231016
  52. ETRUMADENANT [Suspect]
     Active Substance: ETRUMADENANT
     Dosage: FORM: CAPSULE?ROUTE: ORAL?LAST DOSE
     Route: 048
     Dates: start: 20231024, end: 20231120
  53. ETRUMADENANT [Suspect]
     Active Substance: ETRUMADENANT
     Dosage: FORM: CAPSULE?ROUTE: ORAL
     Route: 048
     Dates: start: 20221129, end: 20221227
  54. ETRUMADENANT [Suspect]
     Active Substance: ETRUMADENANT
     Dosage: FORM: CAPSULE?ROUTE: ORAL
     Route: 048
     Dates: start: 20221130, end: 20221227
  55. OXALIPLATIN [Suspect]
     Active Substance: OXALIPLATIN
     Indication: Colorectal cancer
     Dosage: ROUTE: IV DRIP
     Route: 041
     Dates: start: 20221213, end: 20221213
  56. OXALIPLATIN [Suspect]
     Active Substance: OXALIPLATIN
     Dosage: ROUTE: IV DRIP
     Route: 041
     Dates: start: 20221228, end: 20221228
  57. OXALIPLATIN [Suspect]
     Active Substance: OXALIPLATIN
     Dosage: ROUTE: IV DRIP
     Route: 041
     Dates: start: 20230110, end: 20230110
  58. OXALIPLATIN [Suspect]
     Active Substance: OXALIPLATIN
     Dosage: ROUTE: IV DRIP
     Route: 041
     Dates: start: 20230207, end: 20230207
  59. OXALIPLATIN [Suspect]
     Active Substance: OXALIPLATIN
     Dosage: ROUTE: IV DRIP
     Route: 041
     Dates: start: 20230221, end: 20230221
  60. OXALIPLATIN [Suspect]
     Active Substance: OXALIPLATIN
     Dosage: ROUTE: IV DRIP
     Route: 041
     Dates: start: 20230307, end: 20230307
  61. OXALIPLATIN [Suspect]
     Active Substance: OXALIPLATIN
     Dosage: ROUTE: IV DRIP
     Route: 041
     Dates: start: 20230404, end: 20230404
  62. OXALIPLATIN [Suspect]
     Active Substance: OXALIPLATIN
     Dosage: ROUTE: IV DRIP
     Dates: start: 20230425, end: 20230425
  63. OXALIPLATIN [Suspect]
     Active Substance: OXALIPLATIN
     Dosage: ROUTE: IV DRIP
     Route: 041
     Dates: start: 20230509, end: 20230509
  64. OXALIPLATIN [Suspect]
     Active Substance: OXALIPLATIN
     Dosage: ROUTE: IV DRIP
     Route: 041
     Dates: start: 20230523, end: 20230523
  65. OXALIPLATIN [Suspect]
     Active Substance: OXALIPLATIN
     Dosage: ROUTE: IV DRIP
     Route: 041
     Dates: start: 20221129, end: 20221129
  66. OXALIPLATIN [Suspect]
     Active Substance: OXALIPLATIN
     Dosage: ROUTE: IV DRIP?LAST DOSE
     Route: 041
     Dates: start: 20230523, end: 20230523
  67. FLUOROURACIL [Suspect]
     Active Substance: FLUOROURACIL
     Indication: Colorectal cancer
     Dosage: ROUTE: IV DRIP?SINGLE
     Route: 041
     Dates: start: 20221129, end: 20221129
  68. FLUOROURACIL [Suspect]
     Active Substance: FLUOROURACIL
     Dosage: ROUTE: IV BOLUS?SINGLE
     Route: 040
     Dates: start: 20221129, end: 20221129
  69. FLUOROURACIL [Suspect]
     Active Substance: FLUOROURACIL
     Dosage: ROUTE: IV DRIP
     Route: 041
     Dates: start: 20221213, end: 20221213
  70. FLUOROURACIL [Suspect]
     Active Substance: FLUOROURACIL
     Dosage: ROUTE: IV BOLUS?SINGLE
     Route: 040
     Dates: start: 20231213, end: 20231213
  71. FLUOROURACIL [Suspect]
     Active Substance: FLUOROURACIL
     Dosage: ROUTE: IV DRIP
     Route: 041
     Dates: start: 20221228, end: 20221228
  72. FLUOROURACIL [Suspect]
     Active Substance: FLUOROURACIL
     Dosage: ROUTE: IV BOLUS?SINGLE
     Route: 040
     Dates: start: 20221228, end: 20221228
  73. FLUOROURACIL [Suspect]
     Active Substance: FLUOROURACIL
     Dosage: ROUTE: IV DRIP
     Route: 041
     Dates: start: 20230110, end: 20230110
  74. FLUOROURACIL [Suspect]
     Active Substance: FLUOROURACIL
     Dosage: ROUTE: IV BOLUS
     Route: 040
     Dates: start: 20230110, end: 20230110
  75. FLUOROURACIL [Suspect]
     Active Substance: FLUOROURACIL
     Dosage: ROUTE: IV DRIP
     Route: 041
     Dates: start: 20230207, end: 20230207
  76. FLUOROURACIL [Suspect]
     Active Substance: FLUOROURACIL
     Dosage: ROUTE: IV BOLUS
     Route: 040
     Dates: start: 20230207, end: 20230207
  77. FLUOROURACIL [Suspect]
     Active Substance: FLUOROURACIL
     Dosage: ROUTE: IV DRIP
     Route: 041
     Dates: start: 20230221, end: 20230221
  78. FLUOROURACIL [Suspect]
     Active Substance: FLUOROURACIL
     Dosage: ROUTE: IV BOLUS?SINGLE
     Route: 040
     Dates: start: 20230221, end: 20230221
  79. FLUOROURACIL [Suspect]
     Active Substance: FLUOROURACIL
     Dosage: ROUTE: IV DRIP
     Route: 041
     Dates: start: 20230307, end: 20230307
  80. FLUOROURACIL [Suspect]
     Active Substance: FLUOROURACIL
     Dosage: ROUTE: IV BOLUS?SINGLE
     Route: 040
     Dates: start: 20230307, end: 20230307
  81. FLUOROURACIL [Suspect]
     Active Substance: FLUOROURACIL
     Dosage: ROUTE: IV DRIP
     Route: 041
     Dates: start: 20230404, end: 20230404
  82. FLUOROURACIL [Suspect]
     Active Substance: FLUOROURACIL
     Dosage: ROUTE: IV BOLUS
     Route: 040
     Dates: start: 20230404, end: 20230404
  83. FLUOROURACIL [Suspect]
     Active Substance: FLUOROURACIL
     Dosage: ROUTE: IV DRIP
     Route: 041
     Dates: start: 20230425, end: 20230425
  84. FLUOROURACIL [Suspect]
     Active Substance: FLUOROURACIL
     Dosage: ROUTE: IV DRIP
     Route: 041
     Dates: start: 20230509, end: 20230509
  85. FLUOROURACIL [Suspect]
     Active Substance: FLUOROURACIL
     Dosage: ROUTE: IV DRIP
     Route: 041
     Dates: start: 20230523, end: 20230523
  86. FLUOROURACIL [Suspect]
     Active Substance: FLUOROURACIL
     Dosage: ROUTE: IV DRIP
     Route: 041
     Dates: start: 20230627, end: 20230627
  87. FLUOROURACIL [Suspect]
     Active Substance: FLUOROURACIL
     Dosage: ROUTE: IV DRIP
     Route: 041
     Dates: start: 20230712, end: 20230712
  88. FLUOROURACIL [Suspect]
     Active Substance: FLUOROURACIL
     Dosage: ROUTE: IV DRIP
     Route: 041
     Dates: start: 20230725, end: 20230725
  89. FLUOROURACIL [Suspect]
     Active Substance: FLUOROURACIL
     Dosage: ROUTE: IV DRIP
     Route: 041
     Dates: start: 20230809, end: 20230809
  90. FLUOROURACIL [Suspect]
     Active Substance: FLUOROURACIL
     Dosage: ROUTE: IV DRIP
     Route: 041
     Dates: start: 20230822, end: 20230822
  91. FLUOROURACIL [Suspect]
     Active Substance: FLUOROURACIL
     Dosage: ROUTE: IV DRIP
     Route: 041
     Dates: start: 20230906, end: 20230906
  92. FLUOROURACIL [Suspect]
     Active Substance: FLUOROURACIL
     Dosage: ROUTE: IV DRIP?LAST DOSE
     Route: 041
     Dates: start: 20231213, end: 20231213
  93. BEVACIZUMAB [Suspect]
     Active Substance: BEVACIZUMAB
     Indication: Colorectal cancer
     Dosage: SINGLE IV DRIP
     Route: 041
     Dates: start: 20221213, end: 20221213
  94. BEVACIZUMAB [Suspect]
     Active Substance: BEVACIZUMAB
     Dosage: SINGLE IV DRIP
     Route: 041
     Dates: start: 20221228, end: 20221228
  95. BEVACIZUMAB [Suspect]
     Active Substance: BEVACIZUMAB
     Dosage: SINGLE IV DRIP
     Route: 041
     Dates: start: 20230221, end: 20230221
  96. BEVACIZUMAB [Suspect]
     Active Substance: BEVACIZUMAB
     Dosage: SINGLE IV DRIP
     Route: 041
     Dates: start: 20230307, end: 20230307
  97. BEVACIZUMAB [Suspect]
     Active Substance: BEVACIZUMAB
     Dosage: SINGLE IV DRIP
     Route: 041
     Dates: start: 20230404, end: 20230404
  98. BEVACIZUMAB [Suspect]
     Active Substance: BEVACIZUMAB
     Dosage: SINGLE IV DRIP
     Route: 041
     Dates: start: 20230425, end: 20230425
  99. BEVACIZUMAB [Suspect]
     Active Substance: BEVACIZUMAB
     Dosage: SINGLE IV DRIP
     Route: 041
     Dates: start: 20230509, end: 20230509
  100. BEVACIZUMAB [Suspect]
     Active Substance: BEVACIZUMAB
     Dosage: SINGLE IV DRIP
     Route: 041
     Dates: start: 20230523, end: 20230523
  101. BEVACIZUMAB [Suspect]
     Active Substance: BEVACIZUMAB
     Dosage: SINGLE IV DRIP
     Route: 041
     Dates: start: 20230627, end: 20230627
  102. BEVACIZUMAB [Suspect]
     Active Substance: BEVACIZUMAB
     Dosage: SINGLE IV DRIP
     Route: 041
     Dates: start: 20230712, end: 20230712
  103. BEVACIZUMAB [Suspect]
     Active Substance: BEVACIZUMAB
     Dosage: SINGLE IV DRIP
     Route: 041
     Dates: start: 20230725, end: 20230822
  104. BEVACIZUMAB [Suspect]
     Active Substance: BEVACIZUMAB
     Dosage: SINGLE IV DRIP
     Route: 041
     Dates: start: 20230919, end: 20230919
  105. BEVACIZUMAB [Suspect]
     Active Substance: BEVACIZUMAB
     Dosage: SINGLE IV DRIP
     Route: 041
     Dates: start: 20231003, end: 20231003
  106. BEVACIZUMAB [Suspect]
     Active Substance: BEVACIZUMAB
     Dosage: SINGLE IV DRIP
     Route: 041
     Dates: start: 20231024, end: 20231024
  107. BEVACIZUMAB [Suspect]
     Active Substance: BEVACIZUMAB
     Dosage: SINGLE IV DRIP?LAST DOSE
     Route: 041
     Dates: start: 20231213, end: 20231213
  108. BEVACIZUMAB [Suspect]
     Active Substance: BEVACIZUMAB
     Dosage: SINGLE IV DRIP
     Route: 041
     Dates: start: 20221129, end: 20221129
  109. XANAX [Concomitant]
     Active Substance: ALPRAZOLAM
     Indication: Product used for unknown indication
     Dosage: ONGOING
     Dates: start: 19740701
  110. RISPERIDAL (RISPERIDONE) [Concomitant]
     Indication: Product used for unknown indication
     Dosage: UNKNOWN?RISPERIDAL
     Dates: start: 20221130
  111. COMPAZINE [Concomitant]
     Active Substance: PROCHLORPERAZINE MALEATE
     Indication: Product used for unknown indication
     Dosage: PROCHLORPERAZINE?UNKNOWN
     Dates: start: 20221130
  112. MIRALAX [Concomitant]
     Active Substance: POLYETHYLENE GLYCOL 3350
     Indication: Product used for unknown indication
     Dosage: UNKNOWN
     Dates: start: 20230822
  113. TRAMADOL [Concomitant]
     Active Substance: TRAMADOL\TRAMADOL HYDROCHLORIDE
     Indication: Product used for unknown indication
     Dosage: UNKNOWN
     Dates: start: 20231107, end: 20231227
  114. SENNA [Concomitant]
     Active Substance: SENNA LEAF\SENNOSIDES\SENNOSIDES A AND B
     Indication: Product used for unknown indication
     Dosage: UNKNOWN?SENNAKOT
     Dates: start: 20231204
  115. SODIUM CHLORIDE [Concomitant]
     Active Substance: SODIUM CHLORIDE
     Indication: Product used for unknown indication
     Dosage: IV FLUIDS
     Dates: start: 20231227, end: 20231227
  116. OXYCODONE [Concomitant]
     Active Substance: OXYCODONE
     Indication: Product used for unknown indication
     Dosage: UNKNOWN
     Dates: start: 20231227
  117. CIPROFLOXACIN [Concomitant]
     Active Substance: CIPROFLOXACIN
     Indication: Product used for unknown indication
     Dosage: UNKNOWN
     Dates: start: 20231227

REACTIONS (4)
  - Perirectal abscess [Not Recovered/Not Resolved]
  - Condition aggravated [Not Recovered/Not Resolved]
  - Proctalgia [Not Recovered/Not Resolved]
  - Gait disturbance [Not Recovered/Not Resolved]

NARRATIVE: CASE EVENT DATE: 20240108
